FAERS Safety Report 4679973-8 (Version None)
Quarter: 2005Q2

REPORT INFORMATION
  Report Type: 
  Country: None (occurrence: None)
  Receive Date: 20050531
  Receipt Date: 20050516
  Transmission Date: 20051028
  Serious: Yes (Hospitalization)
  Sender: FDA-Public Use
  Company Number: 2005073632

PATIENT
  Age: 61 Year
  Sex: Female

DRUGS (7)
  1. NORVASC [Suspect]
     Indication: HYPERTENSION
     Dosage: SEE IMAGE
     Route: 048
     Dates: start: 20000301, end: 20050401
  2. NORVASC [Suspect]
     Indication: HYPERTENSION
     Dosage: SEE IMAGE
     Route: 048
     Dates: start: 20050401
  3. ASPIRIN [Concomitant]
  4. SUSTRATE (PROPATYLNITRATE) [Concomitant]
  5. ATENOLOL [Suspect]
  6. SYNTHROID [Concomitant]
  7. GLUCOVANCE [Concomitant]

REACTIONS (3)
  - BLOOD PRESSURE INCREASED [None]
  - CAROTID ARTERY OCCLUSION [None]
  - CHEST PAIN [None]
